FAERS Safety Report 9425629 (Version 2)
Quarter: 2013Q3

REPORT INFORMATION
  Report Type: Spontaneous
  Country: NL (occurrence: NL)
  Receive Date: 20130729
  Receipt Date: 20130810
  Transmission Date: 20140515
  Serious: Yes (Disabling, Other)
  Sender: FDA-Public Use
  Company Number: NL-ROCHE-1253574

PATIENT
  Sex: Male

DRUGS (12)
  1. XOLAIR [Suspect]
     Indication: ASTHMA
     Route: 058
     Dates: start: 20130308, end: 20130510
  2. CETRIZINE [Concomitant]
     Route: 065
  3. PREDNISONE [Concomitant]
     Route: 065
  4. PREDNISONE [Concomitant]
     Route: 065
     Dates: start: 20120831
  5. AZITHROMYCIN [Concomitant]
     Route: 065
     Dates: start: 20120918
  6. SERETIDE [Concomitant]
     Dosage: AEROSOL 25/250
     Route: 065
  7. ALVESCO [Concomitant]
     Dosage: 160 UG
     Route: 065
  8. SINGULAIR [Concomitant]
     Route: 065
  9. SODIUM CHLORIDE [Concomitant]
     Route: 050
     Dates: start: 20120824
  10. ACTOKIT [Concomitant]
  11. AIROMIR [Concomitant]
     Route: 065
     Dates: start: 20120920
  12. FLIXONASE [Concomitant]
     Route: 065
     Dates: start: 20120824

REACTIONS (2)
  - Dyspnoea [Recovered/Resolved]
  - Rash erythematous [Recovered/Resolved]
